FAERS Safety Report 8335941-6 (Version None)
Quarter: 2012Q2

REPORT INFORMATION
  Report Type: 
  Country: None (occurrence: None)
  Receive Date: 20120501
  Receipt Date: 20120501
  Transmission Date: 20120825
  Serious: Yes (Hospitalization)
  Sender: FDA-Public Use
  Company Number: None

PATIENT
  Age: 55 Year
  Sex: Female
  Weight: 64.1 kg

DRUGS (11)
  1. ASPIRIN [Suspect]
     Indication: HEADACHE
     Dosage: 325MG BID Q4H PRN PO CHRONIC
     Route: 048
  2. ZESTORETIC [Concomitant]
  3. NORVASC [Concomitant]
  4. ZOCOR [Concomitant]
  5. M.V.I. [Concomitant]
  6. CELEBREX [Suspect]
     Indication: ARTHRITIS
     Dosage: 200MG BID PO CHRONIC
     Route: 048
  7. EFFEXOR [Concomitant]
  8. NICOTINE [Concomitant]
  9. TYLENOL (CAPLET) [Concomitant]
  10. ZANTAC [Concomitant]
  11. BC POWDER [Suspect]
     Indication: HEADACHE
     Dosage: Q4H PRN PO CHRONIC
     Route: 048

REACTIONS (2)
  - HAEMORRHAGIC ANAEMIA [None]
  - GASTRIC ULCER HAEMORRHAGE [None]
